FAERS Safety Report 8538480-2 (Version None)
Quarter: 2012Q3

REPORT INFORMATION
  Report Type: 
  Country: None (occurrence: None)
  Receive Date: 20120718
  Receipt Date: 20120718
  Transmission Date: 20120928
  Serious: Yes (Disabling)
  Sender: FDA-Public Use
  Company Number: None

PATIENT
  Sex: Male
  Weight: 91.173 kg

DRUGS (1)
  1. PRADAXA [Suspect]
     Dosage: 150 MG TWICE DAY

REACTIONS (1)
  - OPTIC ISCHAEMIC NEUROPATHY [None]
